FAERS Safety Report 21772370 (Version 3)
Quarter: 2024Q4

REPORT INFORMATION
  Report Type: Report from Study
  Country: US (occurrence: US)
  Receive Date: 20221223
  Receipt Date: 20241017
  Transmission Date: 20250114
  Serious: No
  Sender: NOVARTIS
  Company Number: US-002147023-NVSC2022US296153

PATIENT
  Sex: Female

DRUGS (1)
  1. COSENTYX [Suspect]
     Active Substance: SECUKINUMAB
     Indication: Psoriasis
     Dosage: 300 MG, QW
     Route: 058
     Dates: start: 20221221

REACTIONS (3)
  - Injection site haemorrhage [Recovered/Resolved]
  - Injection site bruising [Unknown]
  - Injection site discolouration [Unknown]
